FAERS Safety Report 5335252-7 (Version None)
Quarter: 2007Q2

REPORT INFORMATION
  Report Type: 
  Country: None (occurrence: None)
  Receive Date: 20070525
  Receipt Date: 20070515
  Transmission Date: 20071010
  Serious: Yes (Other)
  Sender: FDA-Public Use
  Company Number: US-PFIZER INC-2007022318

PATIENT

DRUGS (3)
  1. ZYVOX [Suspect]
  2. SYNERCID [Suspect]
  3. DAPTOMYCIN [Concomitant]

REACTIONS (2)
  - DRUG RESISTANCE [None]
  - NO ADVERSE EFFECT [None]
